FAERS Safety Report 13625534 (Version 1)
Quarter: 2017Q2

REPORT INFORMATION
  Report Type: Spontaneous
  Country: DE (occurrence: DE)
  Receive Date: 20170608
  Receipt Date: 20170608
  Transmission Date: 20170830
  Serious: Yes (Other)
  Sender: FDA-Public Use
  Company Number: DE-TORRENT-00006570

PATIENT
  Age: 26 Year
  Sex: Female
  Weight: 40 kg

DRUGS (3)
  1. DINOPROSTONE. [Concomitant]
     Active Substance: DINOPROSTONE
  2. QUETIAPINE. [Suspect]
     Active Substance: QUETIAPINE
  3. FOLIO FORTE [Concomitant]
     Active Substance: FOLIC ACID\VITAMINS

REACTIONS (2)
  - Exposure during pregnancy [Unknown]
  - Gestational diabetes [Recovered/Resolved]
